FAERS Safety Report 15305301 (Version 3)
Quarter: 2018Q4

REPORT INFORMATION
  Report Type: Report from Study
  Country: None (occurrence: NL)
  Receive Date: 20180822
  Receipt Date: 20181009
  Transmission Date: 20190204
  Serious: Yes (Hospitalization)
  Sender: FDA-Public Use
  Company Number: NL-ABBVIE-18S-114-2456366-00

PATIENT
  Sex: Male

DRUGS (1)
  1. DUODOPA [Suspect]
     Active Substance: CARBIDOPA\LEVODOPA
     Indication: PARKINSON^S DISEASE
     Dosage: MD: 8.0, CD: 5.2, ED: 3, CND: 3
     Route: 050
     Dates: start: 20080923

REACTIONS (4)
  - Fall [Recovered/Resolved]
  - Cognitive disorder [Unknown]
  - Hip fracture [Not Recovered/Not Resolved]
  - Incorrect route of product administration [Not Recovered/Not Resolved]
